FAERS Safety Report 6535546-3 (Version None)
Quarter: 2010Q1

REPORT INFORMATION
  Report Type: 
  Country: None (occurrence: None)
  Receive Date: 20100113
  Receipt Date: 20100108
  Transmission Date: 20100710
  Serious: Yes (Life-Threatening, Hospitalization)
  Sender: FDA-Public Use
  Company Number: ES-CELGENEUS-144-21880-09112103

PATIENT
  Sex: Male
  Weight: 73 kg

DRUGS (9)
  1. REVLIMID [Suspect]
     Indication: MULTIPLE MYELOMA
     Route: 048
     Dates: start: 20091019, end: 20091106
  2. DARBEPOETIN [Suspect]
     Indication: MULTIPLE MYELOMA
     Route: 065
     Dates: start: 20091005, end: 20091106
  3. DARBEPOETIN [Suspect]
  4. DEXAMETHASONE [Suspect]
     Indication: MULTIPLE MYELOMA
     Route: 065
     Dates: start: 20091019, end: 20091106
  5. OMEPRAZOLE [Concomitant]
     Indication: PROPHYLAXIS
     Route: 065
  6. TICLID [Concomitant]
     Route: 065
  7. LACEROL RETARD [Concomitant]
     Route: 065
  8. SIMVASTATIN [Concomitant]
     Indication: HYPERCHOLESTEROLAEMIA
     Route: 065
  9. CALCIUM SANDOZ FORTE D [Concomitant]
     Indication: BONE DISORDER
     Route: 065

REACTIONS (3)
  - ACUTE RESPIRATORY FAILURE [None]
  - DEEP VEIN THROMBOSIS [None]
  - PULMONARY EMBOLISM [None]
